FAERS Safety Report 7802631-5 (Version None)
Quarter: 2011Q4

REPORT INFORMATION
  Report Type: 
  Country: None (occurrence: None)
  Receive Date: 20111007
  Receipt Date: 20110927
  Transmission Date: 20120403
  Serious: Yes (Other)
  Sender: FDA-Public Use
  Company Number: PHEH2011US05433

PATIENT
  Sex: Male
  Weight: 79 kg

DRUGS (11)
  1. COLACE [Concomitant]
     Dosage: UNK UKN, UNK
  2. PEPCID [Concomitant]
     Dosage: 28 MG, UNK
  3. MYFORTIC [Suspect]
     Indication: RENAL TRANSPLANT
     Dosage: 360 MG, BID
     Route: 048
  4. BACTRIM DS [Concomitant]
     Dosage: UNK UKN, UNK
  5. CALCIUM CARBONATE [Concomitant]
     Dosage: UNK UKN, UNK
  6. PROGRAF [Concomitant]
     Dosage: 2.5 MG IN MORNING AND 2 MG AT NIGHT
  7. ATENOLOL [Concomitant]
     Dosage: 50 MG, UNK
  8. PREDNISONE [Concomitant]
     Dosage: 5 MG, UNK
  9. VITAMIN D [Concomitant]
     Dosage: (600/200 MG) DAILY
  10. SODIUM PHOSPHATE [Concomitant]
     Dosage: BID
  11. MAGNESIUM OXIDE [Concomitant]
     Dosage: 400 MG (2 PILLS IN MORNING AND 1 AT NIGHT)

REACTIONS (1)
  - RETROPERITONEAL HAEMORRHAGE [None]
